FAERS Safety Report 9040347 (Version 1)
Quarter: 2013Q1

REPORT INFORMATION
  Report Type: Report from Study
  Country: US (occurrence: US)
  Receive Date: 20130129
  Receipt Date: 20130129
  Transmission Date: 20140127
  Serious: No
  Sender: FDA-Public Use
  Company Number: US-ABBOTT-12P-163-0889237-00

PATIENT
  Age: 65 Year
  Sex: Male

DRUGS (9)
  1. HUMIRA 40 MG/0.8 ML PEN [Suspect]
     Indication: CROHN^S DISEASE
     Dates: start: 20111206, end: 20111206
  2. HUMIRA 40 MG/0.8 ML PEN [Suspect]
     Dates: start: 20111220, end: 20111220
  3. HUMIRA 40 MG/0.8 ML PEN [Suspect]
  4. DOXAZOSIN [Concomitant]
     Indication: HYPERTENSION
  5. ATENOLOL [Concomitant]
     Indication: HYPERTENSION
  6. WELLBUTRIN GENERIC [Concomitant]
     Indication: DEPRESSION
  7. MULTIVITAMIN [Concomitant]
     Indication: VITAMIN SUPPLEMENTATION
  8. VITAMIN D [Concomitant]
     Indication: VITAMIN SUPPLEMENTATION
  9. CIALIS [Concomitant]
     Indication: PRODUCT USED FOR UNKNOWN INDICATION
     Dosage: RARELY TAKES ENTIRE TABLET

REACTIONS (1)
  - Nasopharyngitis [Not Recovered/Not Resolved]
